FAERS Safety Report 13527435 (Version 2)
Quarter: 2017Q2

REPORT INFORMATION
  Report Type: Spontaneous
  Country: RO (occurrence: RO)
  Receive Date: 20170509
  Receipt Date: 20170523
  Transmission Date: 20170830
  Serious: Yes (Other)
  Sender: FDA-Public Use
  Company Number: RO-PFIZER INC-2017198266

PATIENT
  Age: 60 Year
  Sex: Male

DRUGS (1)
  1. SUTENT [Suspect]
     Active Substance: SUNITINIB MALATE
     Indication: PAPILLARY RENAL CELL CARCINOMA
     Dosage: 50 MG, CYCLIC(50 MG/ DAY 4 WEEKS WITH 2 WEEKS PAUSE)
     Route: 048
     Dates: start: 2011, end: 201704

REACTIONS (5)
  - Myxoedema [Recovering/Resolving]
  - Hypothyroidism [Recovering/Resolving]
  - Hypertension [Not Recovered/Not Resolved]
  - Blood glucose increased [Recovering/Resolving]
  - Dyslipidaemia [Recovering/Resolving]
